FAERS Safety Report 5477709-4 (Version None)
Quarter: 2007Q4

REPORT INFORMATION
  Report Type: 
  Country: None (occurrence: None)
  Receive Date: 20071003
  Receipt Date: 20071003
  Transmission Date: 20080405
  Serious: Yes (Hospitalization)
  Sender: FDA-Public Use
  Company Number: None

PATIENT
  Sex: Female
  Weight: 56 kg

DRUGS (2)
  1. CARBOPLATIN [Suspect]
     Dosage: 758 MG
     Dates: end: 20070525
  2. TAXOL [Suspect]
     Dosage: 285 MG
     Dates: end: 20070525

REACTIONS (5)
  - DECUBITUS ULCER [None]
  - HYPOTENSION [None]
  - NEUTROPENIA [None]
  - PYREXIA [None]
  - TACHYCARDIA [None]
